FAERS Safety Report 7235256-3 (Version None)
Quarter: 2011Q1

REPORT INFORMATION
  Report Type: 
  Country: None (occurrence: None)
  Receive Date: 20110120
  Receipt Date: 20110118
  Transmission Date: 20110831
  Serious: Yes (Hospitalization)
  Sender: FDA-Public Use
  Company Number: ES-BRISTOL-MYERS SQUIBB COMPANY-15300007

PATIENT
  Age: 47 Year
  Sex: Female

DRUGS (5)
  1. PANTECTA [Concomitant]
  2. BARACLUDE [Suspect]
     Dosage: ONE YEAR AGO IN MAY 2010 DOSE CHANGED TO 1MG/D
     Route: 048
     Dates: start: 20090601, end: 20100901
  3. SEDOTIME [Concomitant]
  4. IBUPROFEN [Concomitant]
  5. LEXATIN [Concomitant]

REACTIONS (6)
  - HEADACHE [None]
  - VOMITING [None]
  - LOSS OF CONSCIOUSNESS [None]
  - VERTIGO [None]
  - MYALGIA [None]
  - NAUSEA [None]
